FAERS Safety Report 20671521 (Version 3)
Quarter: 2023Q2

REPORT INFORMATION
  Report Type: Report from Study
  Country: US (occurrence: US)
  Receive Date: 20220404
  Receipt Date: 20230405
  Transmission Date: 20230722
  Serious: Yes (Other)
  Sender: FDA-Public Use
  Company Number: US-UCBSA-2022018382

PATIENT
  Sex: Male

DRUGS (5)
  1. BRIVARACETAM [Interacting]
     Active Substance: BRIVARACETAM
     Indication: Seizure
     Dosage: 100 MILLIGRAM, 2X/DAY (BID)
  2. NAYZILAM [Suspect]
     Active Substance: MIDAZOLAM
     Indication: Product used for unknown indication
     Dosage: UNK
  3. CIPRO [Interacting]
     Active Substance: CIPROFLOXACIN HYDROCHLORIDE
     Indication: Product used for unknown indication
     Dosage: UNK
  4. TETRACYCLINE [Concomitant]
     Active Substance: TETRACYCLINE
     Indication: Infection
  5. METRONIDAZOLE [Concomitant]
     Active Substance: METRONIDAZOLE
     Indication: Infection

REACTIONS (5)
  - Seizure [Recovered/Resolved]
  - Infection [Not Recovered/Not Resolved]
  - HLA-B*1502 assay positive [Unknown]
  - Drug interaction [Unknown]
  - Product use issue [Unknown]
